FAERS Safety Report 18444459 (Version 4)
Quarter: 2021Q3

REPORT INFORMATION
  Report Type: Spontaneous
  Country: MY (occurrence: MY)
  Receive Date: 20201030
  Receipt Date: 20210701
  Transmission Date: 20211014
  Serious: Yes (Hospitalization, Other)
  Sender: FDA-Public Use
  Company Number: MY-B.I. PHARMACEUTICALS,INC./RIDGEFIELD-2020-BI-057268

PATIENT
  Age: 19 Year
  Sex: Male

DRUGS (2)
  1. INSUGEN [Concomitant]
     Indication: TYPE 2 DIABETES MELLITUS
     Dosage: 24 IU OM, 20 IU ON
     Route: 058
  2. GLYXAMBI [Suspect]
     Active Substance: EMPAGLIFLOZIN\LINAGLIPTIN
     Indication: TYPE 2 DIABETES MELLITUS
     Dosage: 1 TABLET OD; 25MG/5MG
     Route: 048
     Dates: start: 20200921, end: 20201006

REACTIONS (1)
  - Diabetic ketoacidosis [Recovering/Resolving]

NARRATIVE: CASE EVENT DATE: 20201006
